FAERS Safety Report 20042147 (Version 2)
Quarter: 2021Q4

REPORT INFORMATION
  Report Type: Spontaneous
  Country: US (occurrence: US)
  Receive Date: 20211108
  Receipt Date: 20211116
  Transmission Date: 20220303
  Serious: Yes (Hospitalization, Other)
  Sender: FDA-Public Use
  Company Number: US-AUROBINDO-AUR-APL-2021-045145

PATIENT
  Age: 13 Year
  Sex: Male

DRUGS (6)
  1. DEXAMETHASONE [Suspect]
     Active Substance: DEXAMETHASONE
     Indication: Lymphoma
     Dosage: UNK (DAYS 1 TO 5)
     Route: 065
  2. METHOTREXATE [Suspect]
     Active Substance: METHOTREXATE
     Indication: Lymphoma
     Dosage: UNK (DAY 1)
     Route: 065
  3. IFOSFAMIDE [Suspect]
     Active Substance: IFOSFAMIDE
     Indication: Lymphoma
     Dosage: UNK (DAYS 1 TO 5)
     Route: 065
  4. ETOPOSIDE [Suspect]
     Active Substance: ETOPOSIDE
     Indication: Lymphoma
     Dosage: UNK (DAYS 4 TO 5)
     Route: 065
  5. CYTARABINE [Suspect]
     Active Substance: CYTARABINE
     Indication: Lymphoma
     Dosage: UNK ()
     Route: 065
  6. CRIZOTINIB [Suspect]
     Active Substance: CRIZOTINIB
     Indication: Lymphoma
     Dosage: UNK (DAYS 4 TO 5)
     Route: 065

REACTIONS (4)
  - Clostridium difficile colitis [Recovered/Resolved]
  - Febrile neutropenia [Recovered/Resolved]
  - Chills [Unknown]
  - Tachycardia [Recovering/Resolving]
